FAERS Safety Report 23053362 (Version 1)
Quarter: 2023Q4

REPORT INFORMATION
  Report Type: Report from Study
  Country: ES (occurrence: None)
  Receive Date: 20231011
  Receipt Date: 20231011
  Transmission Date: 20240110
  Serious: Yes (Death, Hospitalization)
  Sender: FDA-Public Use
  Company Number: ES-ROCHE-3310933

PATIENT
  Age: 60 Year
  Sex: Female
  Weight: 57 kg

DRUGS (5)
  1. ATEZOLIZUMAB [Suspect]
     Active Substance: ATEZOLIZUMAB
     Indication: Anaplastic thyroid cancer
     Dosage: CYCLE 6 TAKEN BEFORE SAE ONSET 07/MAR/2023
     Route: 065
     Dates: start: 20221121
  2. ATEZOLIZUMAB [Suspect]
     Active Substance: ATEZOLIZUMAB
     Dosage: CYCLE 6
     Route: 065
     Dates: start: 20230307
  3. CABOZANTINIB [Suspect]
     Active Substance: CABOZANTINIB
     Indication: Anaplastic thyroid cancer
     Dosage: CYCLE 5 BEFORE SAE ONSET: 14/FEB/2023
     Route: 065
     Dates: start: 20221121
  4. LOSARTAN [Concomitant]
     Active Substance: LOSARTAN
     Route: 048
  5. DIAZEPAM [Concomitant]
     Active Substance: DIAZEPAM
     Route: 048

REACTIONS (2)
  - Respiratory failure [Not Recovered/Not Resolved]
  - Disease progression [Fatal]

NARRATIVE: CASE EVENT DATE: 20230311
